FAERS Safety Report 6102385 (Version 1)
Quarter: 2020Q3

REPORT INFORMATION
  Report Type: Report from Study
  Country: US (occurrence: US)
  Receive Date: 20060809
  Receipt Date: 20060809
  Transmission Date: 20201105
  Serious: Yes (Death)
  Sender: FDA-Public Use
  Company Number: US-ROCHE-451427

PATIENT
  Age: 53 Year
  Sex: Male

DRUGS (14)
  1. COREG [Concomitant]
     Active Substance: CARVEDILOL
     Dates: start: 20060210, end: 20060608
  2. SODIUM BICARBONATE. [Concomitant]
     Active Substance: SODIUM BICARBONATE
     Dates: start: 20060601, end: 20060608
  3. PREDNISONE. [Suspect]
     Active Substance: PREDNISONE
     Route: 048
     Dates: start: 20051123, end: 20060608
  4. TACROLIMUS. [Suspect]
     Active Substance: TACROLIMUS
     Route: 048
     Dates: start: 20060527, end: 20060608
  5. MYCOPHENOLATE MOFETIL. [Suspect]
     Active Substance: MYCOPHENOLATE MOFETIL
     Route: 048
     Dates: start: 20051118, end: 20060608
  6. LANTUS [Concomitant]
     Active Substance: INSULIN GLARGINE
     Dates: start: 20051123, end: 20060608
  7. GLIPIZIDE. [Concomitant]
     Active Substance: GLIPIZIDE
     Dates: start: 20051122, end: 20060608
  8. PROTONIX [Concomitant]
     Active Substance: PANTOPRAZOLE SODIUM
     Dates: start: 20051120, end: 20060608
  9. METOPROLOL. [Concomitant]
     Active Substance: METOPROLOL
     Dates: start: 20051119, end: 20060608
  10. ASPIRIN. [Concomitant]
     Active Substance: ASPIRIN
     Dates: start: 20051122, end: 20060608
  11. NORVASC [Concomitant]
     Active Substance: AMLODIPINE BESYLATE
     Dates: start: 20060601, end: 20060608
  12. INSULIN NOS [Concomitant]
     Active Substance: INSULIN NOS
     Dosage: SLIDING SCALE
     Dates: start: 20051122, end: 20060608
  13. SEPTRA [Concomitant]
     Active Substance: SULFAMETHOXAZOLE\TRIMETHOPRIM
     Dates: start: 20051121, end: 20060608
  14. COLACE [Concomitant]
     Active Substance: DOCUSATE SODIUM
     Dates: start: 20051120, end: 20060608

REACTIONS (6)
  - Cardio-respiratory arrest [Fatal]
  - Dyspnoea [None]
  - Loss of consciousness [None]
  - Ventricular tachycardia [None]
  - Renal transplant [None]
  - Ventricular fibrillation [None]

NARRATIVE: CASE EVENT DATE: 20060608
